FAERS Safety Report 14655839 (Version 2)
Quarter: 2018Q1

REPORT INFORMATION
  Report Type: Spontaneous
  Country: US (occurrence: US)
  Receive Date: 20180319
  Receipt Date: 20180331
  Transmission Date: 20180509
  Serious: No
  Sender: FDA-Public Use
  Company Number: US-009507513-1803USA006398

PATIENT
  Age: 20 Year
  Sex: Female
  Weight: 88.89 kg

DRUGS (1)
  1. NEXPLANON [Suspect]
     Active Substance: ETONOGESTREL
     Dosage: 1 DF, UNKNOWN
     Route: 065
     Dates: end: 20180307

REACTIONS (4)
  - Complication of device removal [Recovered/Resolved]
  - No adverse event [Unknown]
  - Infertility female [Unknown]
  - Device breakage [Recovered/Resolved]

NARRATIVE: CASE EVENT DATE: 20161208
